FAERS Safety Report 5157761-6 (Version None)
Quarter: 2006Q4

REPORT INFORMATION
  Report Type: 
  Country: None (occurrence: None)
  Receive Date: 20061116
  Receipt Date: 20061103
  Transmission Date: 20070319
  Serious: Yes (Hospitalization, Other)
  Sender: FDA-Public Use
  Company Number: 2006SP005734

PATIENT
  Age: 56 Year
  Sex: Female

DRUGS (2)
  1. PEG-INTRON [Suspect]
     Indication: HEPATITIS C
     Dates: start: 20060927, end: 20061018
  2. RIBAVIRIN [Suspect]
     Indication: HEPATITIS C
     Dates: start: 20060927, end: 20061018

REACTIONS (3)
  - HYPOAESTHESIA [None]
  - NAUSEA [None]
  - UNEVALUABLE EVENT [None]
